FAERS Safety Report 9790266 (Version 1)
Quarter: 2013Q4

REPORT INFORMATION
  Report Type: Spontaneous
  Country: ES (occurrence: ES)
  Receive Date: 20131231
  Receipt Date: 20131231
  Transmission Date: 20140711
  Serious: Yes (Hospitalization)
  Sender: FDA-Public Use
  Company Number: ES-SA-2013SA133144

PATIENT
  Age: 77 Year
  Sex: Female

DRUGS (6)
  1. SEGURIL [Suspect]
     Indication: CARDIAC FAILURE CONGESTIVE
     Dosage: 1-1/2-0
     Route: 048
     Dates: start: 20130208, end: 20130319
  2. INDAPAMIDE [Interacting]
     Indication: HYPERTENSION
     Dosage: 2.5MG -0-0
     Route: 048
     Dates: start: 20130208, end: 20130319
  3. CARVEDILOL [Concomitant]
     Indication: CARDIAC FAILURE CONGESTIVE
     Dosage: 1-0-1
     Route: 048
     Dates: start: 20130208
  4. CARDYL [Concomitant]
     Indication: DYSLIPIDAEMIA
     Dosage: 0-0-1
     Route: 048
     Dates: start: 2010
  5. CLEXANE [Concomitant]
     Indication: ATRIAL FLUTTER
     Dosage: 40MG712H
     Route: 058
     Dates: start: 20130208
  6. PANTOPRAZOLE [Concomitant]
     Indication: PROPHYLAXIS AGAINST GASTROINTESTINAL ULCER
     Dosage: 1CP
     Route: 048
     Dates: start: 20130208

REACTIONS (6)
  - Hypokalaemia [Recovered/Resolved]
  - Palpitations [Recovered/Resolved]
  - Tremor [Recovered/Resolved]
  - Hyponatraemia [Recovered/Resolved]
  - Asthenia [Recovered/Resolved]
  - Drug interaction [Unknown]
